FAERS Safety Report 24160157 (Version 1)
Quarter: 2024Q3

REPORT INFORMATION
  Report Type: Spontaneous
  Country: US (occurrence: US)
  Receive Date: 20240801
  Receipt Date: 20240801
  Transmission Date: 20241016
  Serious: No
  Sender: SANDOZ
  Company Number: US-SANDOZ-SDZ2024US069292

PATIENT
  Sex: Female

DRUGS (2)
  1. DUPIXENT [Suspect]
     Active Substance: DUPILUMAB
     Indication: Product used for unknown indication
     Dosage: UNK
     Route: 065
     Dates: start: 202310, end: 202401
  2. METHOTREXATE [Suspect]
     Active Substance: METHOTREXATE
     Indication: Product used for unknown indication
     Dosage: UNK
     Route: 048
     Dates: start: 202403

REACTIONS (3)
  - Peripheral swelling [Not Recovered/Not Resolved]
  - Mobility decreased [Unknown]
  - Skin injury [Unknown]
